FAERS Safety Report 18208128 (Version 2)
Quarter: 2020Q3

REPORT INFORMATION
  Report Type: Spontaneous
  Country: JP (occurrence: JP)
  Receive Date: 20200828
  Receipt Date: 20200926
  Transmission Date: 20201103
  Serious: Yes (Other)
  Sender: FDA-Public Use
  Company Number: JP-AMGEN-JPNSP2020138751

PATIENT
  Age: 7 Decade
  Sex: Male

DRUGS (1)
  1. RANMARK [Suspect]
     Active Substance: DENOSUMAB
     Indication: METASTASES TO BONE
     Dosage: 120 MG, ONCE EVERY 1 MO
     Route: 058
     Dates: start: 20200514

REACTIONS (3)
  - Plantar fasciitis [Unknown]
  - Arthralgia [Unknown]
  - Cellulitis [Unknown]
